FAERS Safety Report 5709468-1 (Version None)
Quarter: 2008Q2

REPORT INFORMATION
  Report Type: 
  Country: None (occurrence: None)
  Receive Date: 20080417
  Receipt Date: 20080417
  Transmission Date: 20081010
  Serious: Yes (Other)
  Sender: FDA-Public Use
  Company Number: None

PATIENT
  Age: 13 Year
  Sex: Male
  Weight: 39.4629 kg

DRUGS (1)
  1. TAMIFLU [Suspect]
     Indication: INFLUENZA IMMUNISATION
     Dosage: TAMIFLU 75 ONE PO QD PO
     Route: 048
     Dates: start: 20080228, end: 20080306

REACTIONS (2)
  - LACERATION [None]
  - SELF INJURIOUS BEHAVIOUR [None]
